FAERS Safety Report 13285532 (Version 2)
Quarter: 2017Q2

REPORT INFORMATION
  Report Type: Spontaneous
  Country: FR (occurrence: FR)
  Receive Date: 20170301
  Receipt Date: 20170417
  Transmission Date: 20170830
  Serious: Yes (Other)
  Sender: FDA-Public Use
  Company Number: FR-PFIZER INC-2017087247

PATIENT
  Age: 56 Year
  Sex: Female
  Weight: 48 kg

DRUGS (2)
  1. LYRICA [Suspect]
     Active Substance: PREGABALIN
     Indication: PAIN
     Dosage: 25 MG, 3X/DAY
     Route: 048
     Dates: start: 20170118, end: 20170205
  2. HERCEPTIN [Concomitant]
     Active Substance: TRASTUZUMAB
     Indication: BREAST CANCER
     Dosage: UNK, EVERY 3 WEEKS
     Dates: start: 20161002

REACTIONS (3)
  - Deafness unilateral [Recovering/Resolving]
  - Hypergammaglobulinaemia [Recovering/Resolving]
  - Hyperacusis [Recovering/Resolving]

NARRATIVE: CASE EVENT DATE: 201702
